FAERS Safety Report 13400674 (Version 2)
Quarter: 2017Q3

REPORT INFORMATION
  Report Type: Report from Study
  Country: CN (occurrence: CN)
  Receive Date: 20170404
  Receipt Date: 20170712
  Transmission Date: 20171127
  Serious: Yes (Hospitalization)
  Sender: FDA-Public Use
  Company Number: CN-BRISTOL-MYERS SQUIBB COMPANY-BMS-2017-026900

PATIENT
  Age: 65 Year
  Sex: Male
  Weight: 105 kg

DRUGS (3)
  1. GABAPENTIN. [Concomitant]
     Active Substance: GABAPENTIN
     Indication: PRODUCT USED FOR UNKNOWN INDICATION
     Dosage: 0.6 G, UNK
     Route: 065
     Dates: start: 20170308, end: 20170321
  2. IPILIMUMAB [Suspect]
     Active Substance: IPILIMUMAB
     Indication: MALIGNANT MELANOMA
     Dosage: 63 ML, UNK
     Route: 042
     Dates: start: 20170215
  3. TAMSULOSIN [Concomitant]
     Active Substance: TAMSULOSIN
     Indication: PRODUCT USED FOR UNKNOWN INDICATION
     Dosage: 0.2 MG, UNK
     Route: 065
     Dates: start: 20170226, end: 20170324

REACTIONS (1)
  - Erythema [Recovered/Resolved]

NARRATIVE: CASE EVENT DATE: 20170327
